FAERS Safety Report 8268543-0 (Version None)
Quarter: 2012Q2

REPORT INFORMATION
  Report Type: 
  Country: None (occurrence: None)
  Receive Date: 20120409
  Receipt Date: 20120329
  Transmission Date: 20120825
  Serious: Yes (Disabling)
  Sender: FDA-Public Use
  Company Number: FR-GLAXOSMITHKLINE-B0792140A

PATIENT
  Age: 74 Year
  Sex: Male
  Weight: 79 kg

DRUGS (7)
  1. ARIXTRA [Suspect]
     Indication: AORTIC VALVE REPLACEMENT
     Route: 058
     Dates: start: 20110501, end: 20120130
  2. ATORVASTATIN [Concomitant]
  3. FUROSEMIDE [Concomitant]
  4. ACETAMINOPHEN AND TRAMADOL HCL [Concomitant]
  5. OMEPRAZOLE [Concomitant]
  6. BISOPROLOL FUMARATE [Concomitant]
  7. ACETAMINOPHEN AND CODEINE PHOSPHATE [Concomitant]
     Route: 048

REACTIONS (3)
  - INCORRECT DRUG ADMINISTRATION DURATION [None]
  - OFF LABEL USE [None]
  - HAEMATOMA [None]
